FAERS Safety Report 7335466-0 (Version None)
Quarter: 2011Q1

REPORT INFORMATION
  Report Type: 
  Country: None (occurrence: None)
  Receive Date: 20110307
  Receipt Date: 20110224
  Transmission Date: 20110831
  Serious: Yes (Hospitalization)
  Sender: FDA-Public Use
  Company Number: US-ASTRAZENECA-2011SE10537

PATIENT
  Age: 53 Year
  Sex: Male

DRUGS (3)
  1. CRESTOR [Suspect]
     Indication: HYPERCHOLESTEROLAEMIA
     Route: 048
     Dates: start: 20100101, end: 20110202
  2. LIPITOR [Concomitant]
     Dates: start: 20091101
  3. LIPITOR [Concomitant]
     Dates: end: 20100101

REACTIONS (5)
  - MYALGIA [None]
  - MUSCULAR WEAKNESS [None]
  - STENT PLACEMENT [None]
  - ACUTE MYOCARDIAL INFARCTION [None]
  - BLOOD CREATINE PHOSPHOKINASE INCREASED [None]
